FAERS Safety Report 22615528 (Version 1)
Quarter: 2023Q2

REPORT INFORMATION
  Report Type: Spontaneous
  Country: CN (occurrence: CN)
  Receive Date: 20230619
  Receipt Date: 20230619
  Transmission Date: 20230721
  Serious: Yes (Hospitalization)
  Sender: FDA-Public Use
  Company Number: CN-PFIZER INC-PV202300105200

PATIENT
  Age: 54 Year
  Sex: Male
  Weight: 78 kg

DRUGS (2)
  1. CYTARABINE [Suspect]
     Active Substance: CYTARABINE
     Indication: Acute myeloid leukaemia
     Dosage: 6.0 Q12H D1-2, 5.5 Q12H D3
     Route: 041
     Dates: start: 20230524, end: 20230526
  2. DEXTROSE [Concomitant]
     Active Substance: DEXTROSE\DEXTROSE MONOHYDRATE
     Indication: Vehicle solution use
     Dosage: 500 ML, 2X/DAY
     Route: 041
     Dates: start: 20230524, end: 20230526

REACTIONS (9)
  - White blood cell count decreased [Recovering/Resolving]
  - Neutrophil count decreased [Recovering/Resolving]
  - Haemoglobin decreased [Recovering/Resolving]
  - Platelet count decreased [Recovering/Resolving]
  - Myelosuppression [Recovering/Resolving]
  - Granulocyte count decreased [Recovering/Resolving]
  - Pyrexia [Recovered/Resolved]
  - C-reactive protein increased [Recovering/Resolving]
  - Serum amyloid A protein increased [Recovering/Resolving]

NARRATIVE: CASE EVENT DATE: 20230101
